FAERS Safety Report 7014652-3 (Version None)
Quarter: 2010Q3

REPORT INFORMATION
  Report Type: 
  Country: None (occurrence: None)
  Receive Date: 20100924
  Receipt Date: 20100924
  Transmission Date: 20110219
  Serious: Yes (Life-Threatening, Hospitalization)
  Sender: FDA-Public Use
  Company Number: None

PATIENT
  Age: 59 Year
  Sex: Male
  Weight: 101 kg

DRUGS (1)
  1. SIMVASTATIN [Suspect]
     Dosage: 40 MG EVERY DAY PO
     Route: 048
     Dates: start: 20080624, end: 20090622

REACTIONS (1)
  - RHABDOMYOLYSIS [None]
